FAERS Safety Report 7105591-8 (Version None)
Quarter: 2010Q4

REPORT INFORMATION
  Report Type: 
  Country: None (occurrence: None)
  Receive Date: 20101116
  Receipt Date: 20101112
  Transmission Date: 20110411
  Serious: Yes (Life-Threatening)
  Sender: FDA-Public Use
  Company Number: HU-ROCHE-741150

PATIENT
  Age: 84 Year
  Sex: Female

DRUGS (1)
  1. MIRCERA [Suspect]
     Route: 065
     Dates: start: 20091008

REACTIONS (1)
  - GASTRIC NEOPLASM [None]
